FAERS Safety Report 10953589 (Version 1)
Quarter: 2015Q1

REPORT INFORMATION
  Report Type: Spontaneous
  Country: JP (occurrence: JP)
  Receive Date: 20150325
  Receipt Date: 20150325
  Transmission Date: 20150721
  Serious: Yes (Death, Hospitalization)
  Sender: FDA-Public Use
  Company Number: JP-PFIZER INC-2015060429

PATIENT
  Age: 83 Year
  Sex: Male

DRUGS (1)
  1. ANCARON [Suspect]
     Active Substance: AMIODARONE HYDROCHLORIDE
     Indication: EXTRASYSTOLES
     Dosage: 200 MG, DAILY
     Route: 048
     Dates: start: 201406, end: 201408

REACTIONS (7)
  - Inappropriate antidiuretic hormone secretion [Recovering/Resolving]
  - Hypothyroidism [Recovering/Resolving]
  - Loss of consciousness [Recovering/Resolving]
  - Respiratory failure [Fatal]
  - Interstitial lung disease [Not Recovered/Not Resolved]
  - Pneumonia aspiration [Recovering/Resolving]
  - Hypertensive crisis [Unknown]

NARRATIVE: CASE EVENT DATE: 2014
